FAERS Safety Report 10038970 (Version 2)
Quarter: 2014Q2

REPORT INFORMATION
  Report Type: Spontaneous
  Country: US (occurrence: US)
  Receive Date: 20140326
  Receipt Date: 20140410
  Transmission Date: 20141212
  Serious: No
  Sender: FDA-Public Use
  Company Number: US-009507513-1403USA006020

PATIENT
  Age: 66 Year
  Sex: Female
  Weight: 99.77 kg

DRUGS (9)
  1. MIRALAX [Suspect]
     Indication: CONSTIPATION
     Dosage: 17 G, QD
     Route: 048
     Dates: start: 20140226, end: 20140228
  2. MIRALAX [Suspect]
     Dosage: 17 G, QD
     Route: 048
     Dates: start: 20140305, end: 20140307
  3. AMLODIPINE [Concomitant]
     Indication: HYPERTENSION
     Dosage: UNK, UNKNOWN
  4. NAPROXEN [Concomitant]
     Indication: ARTHRITIS
     Dosage: UNK, UNKNOWN
  5. METHADONE HYDROCHLORIDE [Concomitant]
     Indication: ARTHRITIS
     Dosage: UNK, UNKNOWN
  6. CYMBALTA [Concomitant]
     Indication: DEPRESSION
     Dosage: UNK, UNKNOWN
  7. EFFEXOR [Concomitant]
     Indication: DEPRESSION
     Dosage: UNK, UNKNOWN
  8. TRAZODONE HYDROCHLORIDE [Concomitant]
     Indication: ANXIETY
     Dosage: UNK, UNKNOWN
  9. WELLBUTRIN [Concomitant]
     Indication: ANXIETY
     Dosage: UNK, UNKNOWN

REACTIONS (1)
  - Vaginal discharge [Not Recovered/Not Resolved]
